FAERS Safety Report 12970178 (Version 2)
Quarter: 2017Q1

REPORT INFORMATION
  Report Type: Report from Study
  Country: CA (occurrence: CA)
  Receive Date: 20161123
  Receipt Date: 20170106
  Transmission Date: 20170428
  Serious: Yes (Other)
  Sender: FDA-Public Use
  Company Number: CA-JNJFOC-20160710520

PATIENT
  Age: 57 Year
  Sex: Male
  Weight: 112.49 kg

DRUGS (30)
  1. REMICADE [Suspect]
     Active Substance: INFLIXIMAB
     Indication: CROHN^S DISEASE
     Route: 042
  2. REMICADE [Suspect]
     Active Substance: INFLIXIMAB
     Indication: CROHN^S DISEASE
     Dosage: 100 MG/VIAL, (10MG/ML)
     Route: 042
     Dates: start: 20120915
  3. REMICADE [Suspect]
     Active Substance: INFLIXIMAB
     Indication: CROHN^S DISEASE
     Route: 042
     Dates: start: 20120515
  4. SUPEUDOL [Concomitant]
     Active Substance: OXYCODONE HYDROCHLORIDE
     Route: 065
     Dates: start: 20160707
  5. MOGADON [Concomitant]
     Active Substance: NITRAZEPAM
     Route: 065
     Dates: start: 20160712
  6. BICARBONATE SODIUM [Concomitant]
     Route: 065
     Dates: start: 20160712
  7. LAX-A-DAY [Concomitant]
     Dosage: DISSOLVE 17 GRAMS IN 250 ML LIQUID, 4 TIMES A DAY FOR 14 DAYS
     Route: 065
     Dates: start: 20160329
  8. PICO-SALAX [Concomitant]
     Active Substance: ANHYDROUS CITRIC ACID\MAGNESIUM OXIDE\SODIUM PICOSULFATE
     Dosage: INTERVAL: AS PER PROTOCOL
     Route: 048
     Dates: start: 20160327
  9. COLCHICINE. [Concomitant]
     Active Substance: COLCHICINE
     Route: 065
  10. REMICADE [Suspect]
     Active Substance: INFLIXIMAB
     Indication: CROHN^S DISEASE
     Route: 042
     Dates: start: 20160712
  11. FENOFIBRATE. [Concomitant]
     Active Substance: FENOFIBRATE
     Route: 065
     Dates: start: 20160712
  12. ULORIC [Concomitant]
     Active Substance: FEBUXOSTAT
     Route: 065
     Dates: start: 20160712
  13. DEXILANT [Concomitant]
     Active Substance: DEXLANSOPRAZOLE
     Route: 065
     Dates: start: 20160712
  14. CYANOCOBALAMIN. [Concomitant]
     Active Substance: CYANOCOBALAMIN
     Dosage: ONE INTRA-MUSCULAR INJECTION ^Q1M^ GIVEN BY A DOCTOR OR NURSE
     Route: 030
     Dates: start: 20160615
  15. LOSARTAN. [Concomitant]
     Active Substance: LOSARTAN
     Route: 065
  16. MIRTAZAPINE. [Concomitant]
     Active Substance: MIRTAZAPINE
     Route: 065
  17. FUROSEMIDE. [Concomitant]
     Active Substance: FUROSEMIDE
     Dosage: AT BREAKFAST
     Route: 065
     Dates: start: 20120712
  18. METOPROLOL. [Concomitant]
     Active Substance: METOPROLOL
     Dosage: 1 TABLET TWICE A DAY AT BREAKFAST AND SUPPER
     Route: 065
  19. NEXIUM [Concomitant]
     Active Substance: ESOMEPRAZOLE MAGNESIUM
     Route: 065
  20. DOCUSATE SODIUM. [Concomitant]
     Active Substance: DOCUSATE SODIUM
     Route: 065
     Dates: start: 20160712
  21. SUPEUDOL [Concomitant]
     Active Substance: OXYCODONE HYDROCHLORIDE
     Route: 065
     Dates: start: 20160707
  22. FUCIDIN [Concomitant]
     Active Substance: FUSIDIC ACID
     Dosage: APPLY TO AFFECTED REGION THREE TIMES A DAY FOR 1 WEEK
     Route: 065
     Dates: start: 20160625
  23. LASIX [Concomitant]
     Active Substance: FUROSEMIDE
     Route: 065
  24. CLONAZEPAM. [Concomitant]
     Active Substance: CLONAZEPAM
     Dosage: TAKE 1 TABLET TWICE A DAY (AS NECESSARY)
     Route: 065
     Dates: start: 20160615
  25. DOMPERIDONE [Concomitant]
     Active Substance: DOMPERIDONE
     Dosage: TAKE 1 TABLET THREE TIMES A DAY, 30 MINUTES BEFORE EACH MEAL
     Route: 065
     Dates: start: 20160512
  26. REMICADE [Suspect]
     Active Substance: INFLIXIMAB
     Indication: CROHN^S DISEASE
     Route: 042
     Dates: start: 20161117
  27. GRAVOL [Concomitant]
     Active Substance: DIMENHYDRINATE
     Dosage: TAKE 1 TABLET 4 TIMES IN 6 HOUR (AS NECCESSARY)
     Route: 065
     Dates: start: 20160625
  28. APO MOMETASONE [Concomitant]
     Dosage: 2 VAPORISATIONS IN EACH NOSTRIL ONCE DAILY
     Route: 045
     Dates: start: 20160615
  29. LIPITOR [Concomitant]
     Active Substance: ATORVASTATIN CALCIUM
     Route: 065
  30. TRAMADOL HYDROCHLORIDE. [Concomitant]
     Active Substance: TRAMADOL HYDROCHLORIDE
     Route: 065

REACTIONS (7)
  - Chronic kidney disease [Not Recovered/Not Resolved]
  - Arthralgia [Not Recovered/Not Resolved]
  - Off label use [Unknown]
  - Congenital cystic kidney disease [Unknown]
  - Abdominal pain [Not Recovered/Not Resolved]
  - Product use issue [Unknown]
  - Inappropriate schedule of drug administration [Unknown]

NARRATIVE: CASE EVENT DATE: 20120515
